FAERS Safety Report 8994309 (Version 1)
Quarter: 2013Q1

REPORT INFORMATION
  Report Type: Report from Study
  Country: DE (occurrence: DE)
  Receive Date: 20130102
  Receipt Date: 20130102
  Transmission Date: 20140127
  Serious: Yes (Hospitalization)
  Sender: FDA-Public Use
  Company Number: DE-BAXTER-2012BAX029410

PATIENT
  Age: 5 Year
  Sex: Male
  Weight: 21 kg

DRUGS (1)
  1. CEPROTIN 1000 I.E. [Suspect]
     Indication: PROTEIN C DEFICIENCY
     Route: 058

REACTIONS (2)
  - Abdominal abscess [Recovered/Resolved]
  - Vomiting [None]
